FAERS Safety Report 13156784 (Version 1)
Quarter: 2017Q1

REPORT INFORMATION
  Report Type: Report from Study
  Country: DE (occurrence: DE)
  Receive Date: 20170126
  Receipt Date: 20170126
  Transmission Date: 20170428
  Serious: Yes (Other)
  Sender: FDA-Public Use
  Company Number: DE-BIOGEN-2017BI00346622

PATIENT
  Age: 43 Year
  Sex: Female

DRUGS (1)
  1. TECFIDERA [Suspect]
     Active Substance: DIMETHYL FUMARATE
     Indication: MULTIPLE SCLEROSIS
     Route: 048
     Dates: start: 20160225

REACTIONS (4)
  - Inflammation [Recovered/Resolved with Sequelae]
  - Renal failure [Not Recovered/Not Resolved]
  - Haemangioma of bone [Recovered/Resolved with Sequelae]
  - Cerebellar haemangioma [Recovered/Resolved with Sequelae]

NARRATIVE: CASE EVENT DATE: 201603
